FAERS Safety Report 5072999-4 (Version None)
Quarter: 2006Q3

REPORT INFORMATION
  Report Type: 
  Country: None (occurrence: None)
  Receive Date: 20060802
  Receipt Date: 20060720
  Transmission Date: 20061208
  Serious: Yes (Other)
  Sender: FDA-Public Use
  Company Number: 2006089720

PATIENT
  Age: 76 Year
  Sex: Male

DRUGS (2)
  1. LATANOPROST [Suspect]
     Indication: GLAUCOMA
  2. BETAXOLOL [Concomitant]

REACTIONS (3)
  - CONJUNCTIVAL HYPERAEMIA [None]
  - LACRIMATION INCREASED [None]
  - POST PROCEDURAL COMPLICATION [None]
